FAERS Safety Report 7103127-9 (Version None)
Quarter: 2010Q4

REPORT INFORMATION
  Report Type: 
  Country: None (occurrence: None)
  Receive Date: 20101108
  Receipt Date: 20101023
  Transmission Date: 20110411
  Serious: Yes (Other)
  Sender: FDA-Public Use
  Company Number: 1000017173

PATIENT
  Age: 28 Year
  Sex: Female

DRUGS (7)
  1. CITALOPRAM HYDROBROMIDE [Suspect]
     Indication: DEPRESSION
  2. SCOPOLAMINE [Suspect]
     Indication: PROPHYLAXIS OF NAUSEA AND VOMITING
     Dosage: (1.5 MG), TRANSDERMAL
     Route: 062
  3. FENTANYL [Concomitant]
  4. PROPOFOL [Concomitant]
  5. MIDAZOLAM (MIDAZOLAM) (MIDAZOLAM) [Concomitant]
  6. DEXAMETHASONE [Concomitant]
  7. ONDANSETRON [Concomitant]

REACTIONS (5)
  - ANKLE OPERATION [None]
  - ANTICHOLINERGIC SYNDROME [None]
  - MYDRIASIS [None]
  - PROCEDURAL COMPLICATION [None]
  - TACHYCARDIA [None]
